FAERS Safety Report 5982125-2 (Version None)
Quarter: 2008Q4

REPORT INFORMATION
  Report Type: 
  Country: None (occurrence: None)
  Receive Date: 20081202
  Receipt Date: 20081121
  Transmission Date: 20090506
  Serious: Yes (Life-Threatening, Other)
  Sender: FDA-Public Use
  Company Number: 2008SP023915

PATIENT
  Sex: Male

DRUGS (1)
  1. TEMODAL [Suspect]
     Indication: ASTROCYTOMA
     Dosage: 120 MG;QD;PO
     Route: 048
     Dates: start: 20060713, end: 20060810

REACTIONS (4)
  - C-REACTIVE PROTEIN INCREASED [None]
  - EXOPHTHALMOS [None]
  - MYELODYSPLASTIC SYNDROME [None]
  - THROMBOCYTOPENIA [None]
